FAERS Safety Report 20957158 (Version 6)
Quarter: 2023Q4

REPORT INFORMATION
  Report Type: Spontaneous
  Country: US (occurrence: US)
  Receive Date: 20220614
  Receipt Date: 20231003
  Transmission Date: 20240110
  Serious: No
  Sender: FDA-Public Use
  Company Number: US-PFIZER INC-202200828262

PATIENT
  Age: 69 Year
  Sex: Female
  Weight: 104 kg

DRUGS (2)
  1. IBRANCE [Suspect]
     Active Substance: PALBOCICLIB
     Indication: Breast cancer metastatic
     Dosage: 125 MG, CYCLIC 1 TABLET (125 MG TOTAL) BY MOUTH ONCE DAILY (FOR 3 WEEKS THEN 1 WEEK OFF)
     Route: 048
     Dates: start: 20220120
  2. IBRANCE [Suspect]
     Active Substance: PALBOCICLIB
     Dosage: 125 MG, CYCLIC 1 TABLET (125 MG TOTAL) BY MOUTH DAILY FOR 21 DAYS
     Route: 048
     Dates: start: 20221122

REACTIONS (6)
  - Gastrooesophageal reflux disease [Unknown]
  - Gingival pain [Unknown]
  - Arthralgia [Unknown]
  - Pain in extremity [Unknown]
  - Breast pain [Unknown]
  - Neck pain [Unknown]
